FAERS Safety Report 23934709 (Version 1)
Quarter: 2024Q2

REPORT INFORMATION
  Report Type: Spontaneous
  Country: GB (occurrence: GB)
  Receive Date: 20240603
  Receipt Date: 20240603
  Transmission Date: 20240716
  Serious: Yes (Other)
  Sender: FDA-Public Use
  Company Number: GB-ABBVIE-5785563

PATIENT
  Sex: Female

DRUGS (2)
  1. ACULAR [Suspect]
     Active Substance: KETOROLAC TROMETHAMINE
     Indication: Eye disorder prophylaxis
     Dosage: 0.5 PERCENT
     Route: 061
  2. TOBRADEX [Concomitant]
     Active Substance: DEXAMETHASONE\TOBRAMYCIN
     Indication: Eye disorder prophylaxis
     Route: 061

REACTIONS (1)
  - Ulcerative keratitis [Unknown]
